FAERS Safety Report 7245379-0 (Version None)
Quarter: 2011Q1

REPORT INFORMATION
  Report Type: 
  Country: None (occurrence: None)
  Receive Date: 20110126
  Receipt Date: 20110124
  Transmission Date: 20110831
  Serious: Yes (Life-Threatening, Hospitalization)
  Sender: FDA-Public Use
  Company Number: RO-ABBOTT-11P-135-0700233-00

PATIENT
  Sex: Male
  Weight: 113 kg

DRUGS (6)
  1. MEROPENEM [Concomitant]
     Indication: PROPHYLAXIS
  2. CEFORT [Concomitant]
     Indication: PROPHYLAXIS
     Route: 042
  3. CIPROFLOXACIN [Concomitant]
     Indication: PROPHYLAXIS
     Route: 042
  4. ZEMPLAR [Suspect]
     Indication: HYPERPARATHYROIDISM SECONDARY
     Route: 048
     Dates: start: 20101110, end: 20110103
  5. MIOFILIN [Concomitant]
     Indication: PROPHYLAXIS
  6. DEXAMETAZONE [Concomitant]
     Indication: PROPHYLAXIS

REACTIONS (2)
  - TRANSIENT ISCHAEMIC ATTACK [None]
  - ACUTE PULMONARY OEDEMA [None]
